FAERS Safety Report 6453761-4 (Version None)
Quarter: 2009Q4

REPORT INFORMATION
  Report Type: 
  Country: None (occurrence: None)
  Receive Date: 20091123
  Receipt Date: 20091123
  Transmission Date: 20100525
  Serious: Yes (Disabling)
  Sender: FDA-Public Use
  Company Number: None

PATIENT
  Age: 39 Year
  Sex: Female
  Weight: 68.2 kg

DRUGS (2)
  1. SENSORCAINE [Suspect]
     Indication: ANAESTHESIA
     Dosage: UNKNOWN
     Route: 065
     Dates: start: 20091001
  2. SENSORCAINE [Suspect]
     Indication: DENTAL OPERATION
     Dosage: UNKNOWN
     Route: 065
     Dates: start: 20091001

REACTIONS (3)
  - HYPOAESTHESIA [None]
  - PALPITATIONS [None]
  - PARAESTHESIA [None]
